FAERS Safety Report 6170640-0 (Version None)
Quarter: 2009Q2

REPORT INFORMATION
  Report Type: 
  Country: None (occurrence: None)
  Receive Date: 20090428
  Receipt Date: 20090416
  Transmission Date: 20091009
  Serious: Yes (Other)
  Sender: FDA-Public Use
  Company Number: TR-ELI_LILLY_AND_COMPANY-TR200904004356

PATIENT
  Age: 78 Year

DRUGS (1)
  1. ZYPREXA [Suspect]

REACTIONS (1)
  - POLYSEROSITIS [None]
